FAERS Safety Report 18963659 (Version 11)
Quarter: 2022Q4

REPORT INFORMATION
  Report Type: Report from Study
  Country: US (occurrence: US)
  Receive Date: 20210303
  Receipt Date: 20221010
  Transmission Date: 20230113
  Serious: No
  Sender: FDA-Public Use
  Company Number: NVSC2021US046782

PATIENT
  Sex: Male

DRUGS (1)
  1. COSENTYX [Suspect]
     Active Substance: SECUKINUMAB
     Indication: Product used for unknown indication
     Dosage: UNK
     Route: 065

REACTIONS (6)
  - Skin haemorrhage [Unknown]
  - Condition aggravated [Unknown]
  - Pruritus [Unknown]
  - Scratch [Unknown]
  - Rash [Unknown]
  - Product dose omission issue [Unknown]
